FAERS Safety Report 6563249-8 (Version None)
Quarter: 2010Q1

REPORT INFORMATION
  Report Type: 
  Country: None (occurrence: None)
  Receive Date: 20100130
  Receipt Date: 20091229
  Transmission Date: 20100710
  Serious: No
  Sender: FDA-Public Use
  Company Number: US-ABBOTT-09P-163-0613065-00

PATIENT
  Sex: Male
  Weight: 65.83 kg

DRUGS (12)
  1. HUMIRA [Suspect]
     Indication: RHEUMATOID ARTHRITIS
     Route: 058
     Dates: start: 20091001
  2. LISINOPRIL [Concomitant]
     Indication: RENAL DISORDER
     Route: 048
  3. LISINOPRIL [Concomitant]
     Indication: DIABETES MELLITUS
  4. FLOMAX [Concomitant]
     Indication: PROSTATIC DISORDER
     Route: 048
  5. LOVASTATIN [Concomitant]
     Indication: BLOOD CHOLESTEROL
     Route: 048
  6. PROTONIX [Concomitant]
     Indication: GASTRIC DISORDER
     Route: 048
  7. ASPIRIN [Concomitant]
     Indication: DRUG USE FOR UNKNOWN INDICATION
     Route: 048
  8. ROXYCODONE [Concomitant]
     Indication: PAIN
  9. COMBIVENT [Concomitant]
     Indication: LUNG DISORDER
  10. ADVAIR DISKUS 100/50 [Concomitant]
     Indication: LUNG DISORDER
  11. TOPROL-XL [Concomitant]
     Indication: DRUG USE FOR UNKNOWN INDICATION
     Route: 048
  12. PREDNISONE [Concomitant]
     Indication: DRUG USE FOR UNKNOWN INDICATION

REACTIONS (6)
  - ANGER [None]
  - ARTHRALGIA [None]
  - DECREASED APPETITE [None]
  - FATIGUE [None]
  - FEELING ABNORMAL [None]
  - MOOD SWINGS [None]
